FAERS Safety Report 6137181-8 (Version None)
Quarter: 2009Q1

REPORT INFORMATION
  Report Type: 
  Country: None (occurrence: None)
  Receive Date: 20090326
  Receipt Date: 20090326
  Transmission Date: 20090719
  Serious: Yes (Disabling, Other)
  Sender: FDA-Public Use
  Company Number: None

PATIENT
  Age: 49 Year
  Sex: Female
  Weight: 52.1637 kg

DRUGS (1)
  1. LAMOTRIGINE [Suspect]
     Indication: AFFECTIVE DISORDER
     Dosage: 100MG ONE TABLET PER DAY PO
     Route: 048
     Dates: start: 20090115, end: 20090325

REACTIONS (9)
  - ABDOMINAL PAIN [None]
  - CHOKING [None]
  - DEPRESSION [None]
  - FEELING ABNORMAL [None]
  - HEADACHE [None]
  - HYPOAESTHESIA ORAL [None]
  - PANIC ATTACK [None]
  - PARAESTHESIA ORAL [None]
  - TONGUE DRY [None]
